FAERS Safety Report 8574517-2 (Version None)
Quarter: 2012Q3

REPORT INFORMATION
  Report Type: 
  Country: None (occurrence: None)
  Receive Date: 20120806
  Receipt Date: 20120731
  Transmission Date: 20120928
  Serious: Yes (Hospitalization)
  Sender: FDA-Public Use
  Company Number: ES-ABBOTT-12P-144-0951743-00

PATIENT
  Sex: Female
  Weight: 53 kg

DRUGS (6)
  1. HUMIRA [Suspect]
     Dosage: WEEK 1
     Route: 058
     Dates: start: 20110307
  2. DICLOFENAC SODIUM [Concomitant]
     Indication: PSORIATIC ARTHROPATHY
     Dosage: AT NIGHT
     Dates: start: 20110719
  3. CLORAZEPATE DIPOTASSIUM [Concomitant]
     Indication: DEPRESSION
     Dosage: AT NIGHT
     Route: 048
     Dates: end: 20110101
  4. XALATAN [Concomitant]
     Indication: PRODUCT USED FOR UNKNOWN INDICATION
     Dates: end: 20110101
  5. HUMIRA [Suspect]
     Indication: PSORIASIS
     Dosage: WEEK 0
     Route: 058
     Dates: start: 20110301, end: 20110301
  6. VENLAFAXINE HCL [Concomitant]
     Indication: DEPRESSION
     Dosage: IN THE MORNING
     Route: 048
     Dates: end: 20110101

REACTIONS (1)
  - OVARIAN GERM CELL TERATOMA STAGE I [None]
